FAERS Safety Report 9893076 (Version 3)
Quarter: 2014Q1

REPORT INFORMATION
  Report Type: Spontaneous
  Country: JP (occurrence: JP)
  Receive Date: 20140213
  Receipt Date: 20140305
  Transmission Date: 20141002
  Serious: Yes (Death)
  Sender: FDA-Public Use
  Company Number: JP-BRISTOL-MYERS SQUIBB COMPANY-20200028

PATIENT
  Age: 62 Year
  Sex: Male
  Weight: 65 kg

DRUGS (4)
  1. ERBITUX SOLN FOR INF 5MG/ML [Suspect]
     Indication: COLON CANCER
     Route: 041
     Dates: start: 20140107, end: 20140121
  2. TS-1 [Suspect]
     Indication: COLON CANCER
     Route: 048
     Dates: start: 20140107, end: 20140121
  3. TOPOTECIN [Suspect]
     Indication: COLON CANCER
     Route: 041
     Dates: start: 20140107, end: 20140121
  4. WARFARIN [Concomitant]
     Indication: ATRIAL FIBRILLATION
     Dosage: TABS
     Route: 048

REACTIONS (4)
  - Cerebral infarction [Fatal]
  - Skin disorder [Unknown]
  - Decreased appetite [Unknown]
  - Diarrhoea [Unknown]
